FAERS Safety Report 14686395 (Version 1)
Quarter: 2018Q1

REPORT INFORMATION
  Report Type: Spontaneous
  Country: US (occurrence: US)
  Receive Date: 20180326
  Receipt Date: 20180326
  Transmission Date: 20180509
  Serious: Yes (Hospitalization, Disabling)
  Sender: FDA-Public Use
  Company Number: None

PATIENT
  Age: 43 Year
  Sex: Female
  Weight: 53.1 kg

DRUGS (3)
  1. FIORINAL [Concomitant]
     Active Substance: ASPIRIN\BUTALBITAL\CAFFEINE
  2. SPIRONOLACTONE. [Concomitant]
     Active Substance: SPIRONOLACTONE
  3. CIPRO [Suspect]
     Active Substance: CIPROFLOXACIN HYDROCHLORIDE
     Indication: URINARY TRACT INFECTION
     Route: 048
     Dates: start: 20180206, end: 20180212

REACTIONS (12)
  - Ear pain [None]
  - Fatigue [None]
  - Lymphadenopathy [None]
  - Joint stiffness [None]
  - Fear [None]
  - Gait disturbance [None]
  - Arthralgia [None]
  - Pain [None]
  - Dysstasia [None]
  - Swelling [None]
  - Localised oedema [None]
  - Rash [None]

NARRATIVE: CASE EVENT DATE: 20180210
